FAERS Safety Report 9396652 (Version 1)
Quarter: 2013Q3

REPORT INFORMATION
  Report Type: Spontaneous
  Country: GB (occurrence: GB)
  Receive Date: 20130711
  Receipt Date: 20130711
  Transmission Date: 20140515
  Serious: Yes (Disabling, Other)
  Sender: FDA-Public Use
  Company Number: GB-MYLANLABS-2013S1014566

PATIENT
  Age: 80 Year
  Sex: Male
  Weight: 74 kg

DRUGS (3)
  1. ATORVASTATIN [Suspect]
     Indication: BLOOD CHOLESTEROL INCREASED
     Route: 048
     Dates: start: 201210
  2. NORMACOL /00561902/ [Concomitant]
     Indication: PRODUCT USED FOR UNKNOWN INDICATION
  3. OLSALAZINE [Concomitant]
     Indication: COLITIS ULCERATIVE
     Dosage: 5 TIMES DAILY
     Route: 048
     Dates: start: 2007

REACTIONS (2)
  - Proctitis [Recovered/Resolved]
  - Condition aggravated [Recovered/Resolved]
